FAERS Safety Report 10478444 (Version 2)
Quarter: 2014Q4

REPORT INFORMATION
  Report Type: Spontaneous
  Country: US (occurrence: None)
  Receive Date: 20140924
  Receipt Date: 20141002
  Transmission Date: 20150528
  Serious: Yes (Other)
  Sender: FDA-Public Use
  Company Number: 140362

PATIENT
  Age: 76 Year
  Sex: Female
  Weight: 72.58 kg

DRUGS (4)
  1. WESTHROID [Concomitant]
     Active Substance: THYROGLOBULIN
  2. MULTIVITAMIN [Concomitant]
     Active Substance: VITAMINS
  3. SUPREP BOWEL PREP [Suspect]
     Active Substance: MAGNESIUM SULFATE\POTASSIUM SULFATE\SODIUM SULFATE
     Indication: COLONOSCOPY
     Dosage: 2 X 6 O. BOTTLE 1X PO
     Route: 048
     Dates: start: 20140825, end: 20140826
  4. TOPROL XL [Concomitant]
     Active Substance: METOPROLOL SUCCINATE

REACTIONS (6)
  - Bronchial irritation [None]
  - Fatigue [None]
  - Tremor [None]
  - Vomiting [None]
  - Hyperhidrosis [None]
  - Pneumonia aspiration [None]

NARRATIVE: CASE EVENT DATE: 20140826
